FAERS Safety Report 7399050-5 (Version None)
Quarter: 2011Q1

REPORT INFORMATION
  Report Type: 
  Country: None (occurrence: None)
  Receive Date: 20110328
  Receipt Date: 20110311
  Transmission Date: 20110831
  Serious: Yes (Disabling, Other)
  Sender: FDA-Public Use
  Company Number: ALA_01375_2010

PATIENT

DRUGS (2)
  1. REGLAN [Suspect]
     Indication: GASTROINTESTINAL DISORDER
     Dosage: 10 MG BID, ORAL (5-10 MG, ORAL)
     Route: 048
     Dates: start: 20051001, end: 20091001
  2. REGLAN [Suspect]
     Indication: GASTROINTESTINAL DISORDER
     Dosage: 10 MG BID, ORAL (5-10 MG, ORAL)
     Route: 048
     Dates: start: 20060101, end: 20060717

REACTIONS (11)
  - NERVOUS SYSTEM DISORDER [None]
  - EXTRAPYRAMIDAL DISORDER [None]
  - DEFORMITY [None]
  - PAIN [None]
  - DYSTONIA [None]
  - MOVEMENT DISORDER [None]
  - ACTIVITIES OF DAILY LIVING IMPAIRED [None]
  - MENTAL DISORDER [None]
  - TARDIVE DYSKINESIA [None]
  - INJURY [None]
  - ECONOMIC PROBLEM [None]
